FAERS Safety Report 18496635 (Version 1)
Quarter: 2020Q4

REPORT INFORMATION
  Report Type: Report from Study
  Country: US (occurrence: US)
  Receive Date: 20201112
  Receipt Date: 20201112
  Transmission Date: 20210114
  Serious: Yes (Other)
  Sender: FDA-Public Use
  Company Number: US-JNJFOC-20200951343

PATIENT
  Age: 10 Year
  Sex: Female
  Weight: 24.6 kg

DRUGS (2)
  1. SIMPONI [Suspect]
     Active Substance: GOLIMUMAB
  2. SIMPONI [Suspect]
     Active Substance: GOLIMUMAB
     Indication: OSTEOMYELITIS
     Route: 058

REACTIONS (5)
  - Product use in unapproved indication [Unknown]
  - Off label use [Unknown]
  - Osteomyelitis chronic [Unknown]
  - Drug delivery system malfunction [Unknown]
  - Product dose omission issue [Unknown]
